FAERS Safety Report 8060285-X (Version None)
Quarter: 2012Q1

REPORT INFORMATION
  Report Type: 
  Country: None (occurrence: None)
  Receive Date: 20120119
  Receipt Date: 20120119
  Transmission Date: 20120608
  Serious: Yes (Hospitalization)
  Sender: FDA-Public Use
  Company Number: None

PATIENT
  Age: 81 Year
  Sex: Female
  Weight: 86 kg

DRUGS (12)
  1. SYNTHROID [Concomitant]
  2. CALCIUM [Concomitant]
  3. METOPROLOL TARTRATE [Concomitant]
  4. ASPIRIN [Suspect]
     Indication: CEREBROVASCULAR ACCIDENT PROPHYLAXIS
     Dosage: 81MG QHS 1 PO  CHRONIC
     Route: 048
  5. M.V.I. [Concomitant]
  6. CRESTOR [Concomitant]
  7. LASIX [Concomitant]
  8. PRADAXA [Suspect]
     Indication: ATRIAL FIBRILLATION
     Dosage: 75MCG DAILY 1 PO RECENT
     Route: 048
  9. LOVAZA [Concomitant]
  10. TRAMADOL HCL [Concomitant]
  11. TYLENOL-500 [Concomitant]
  12. TIMOPTIC [Concomitant]

REACTIONS (3)
  - GASTRITIS [None]
  - UPPER GASTROINTESTINAL HAEMORRHAGE [None]
  - HYPONATRAEMIA [None]
